FAERS Safety Report 5738614-9 (Version None)
Quarter: 2008Q2

REPORT INFORMATION
  Report Type: 
  Country: None (occurrence: None)
  Receive Date: 20080513
  Receipt Date: 20080513
  Transmission Date: 20081010
  Serious: No
  Sender: FDA-Public Use
  Company Number: None

PATIENT

DRUGS (1)
  1. SINGULAIR [Suspect]

REACTIONS (10)
  - ABNORMAL BEHAVIOUR [None]
  - ASPERGER'S DISORDER [None]
  - ATTENTION DEFICIT/HYPERACTIVITY DISORDER [None]
  - BIPOLAR DISORDER [None]
  - DEPRESSION [None]
  - MOOD ALTERED [None]
  - OPPOSITIONAL DEFIANT DISORDER [None]
  - OVERDOSE [None]
  - PERSONALITY CHANGE [None]
  - SLEEP DISORDER [None]
